FAERS Safety Report 18701198 (Version 1)
Quarter: 2021Q1

REPORT INFORMATION
  Report Type: Spontaneous
  Country: US (occurrence: US)
  Receive Date: 20210105
  Receipt Date: 20210105
  Transmission Date: 20210419
  Serious: Yes (Hospitalization)
  Sender: FDA-Public Use
  Company Number: None

PATIENT
  Age: 56 Year
  Sex: Male
  Weight: 87.4 kg

DRUGS (2)
  1. CARBOPLATIN. [Suspect]
     Active Substance: CARBOPLATIN
     Dates: end: 20201130
  2. ETOPOSIDE (VP?16) [Suspect]
     Active Substance: ETOPOSIDE
     Dates: end: 20201130

REACTIONS (5)
  - Fatigue [None]
  - Pyrexia [None]
  - Tachycardia [None]
  - Febrile neutropenia [None]
  - Hyperbilirubinaemia [None]

NARRATIVE: CASE EVENT DATE: 20201208
